FAERS Safety Report 21123475 (Version 1)
Quarter: 2022Q3

REPORT INFORMATION
  Report Type: Report from Study
  Country: US (occurrence: US)
  Receive Date: 20220724
  Receipt Date: 20220724
  Transmission Date: 20221027
  Serious: Yes (Other)
  Sender: FDA-Public Use
  Company Number: US-BRISTOL-MYERS SQUIBB COMPANY-2022-073129

PATIENT
  Age: 85 Year
  Sex: Male
  Weight: 81.1 kg

DRUGS (14)
  1. REVLIMID [Suspect]
     Active Substance: LENALIDOMIDE
     Indication: Myelodysplastic syndrome
     Route: 048
     Dates: start: 20210203
  2. VITAMINS [Concomitant]
     Active Substance: VITAMINS
  3. ISOSORBIDE MONONITRATE [Concomitant]
     Active Substance: ISOSORBIDE MONONITRATE
  4. ASPIRIN [Concomitant]
     Active Substance: ASPIRIN
  5. INFLUENZA VIRUS VACCINE [Concomitant]
     Active Substance: INFLUENZA VIRUS VACCINE
  6. MODERNA COVID-19 VACCINE [Concomitant]
     Active Substance: ELASOMERAN
  7. FLOMAX [Concomitant]
     Active Substance: TAMSULOSIN HYDROCHLORIDE
  8. FUROSEMIDE [Concomitant]
     Active Substance: FUROSEMIDE
  9. LEVOTHYROXINE [Concomitant]
     Active Substance: LEVOTHYROXINE
  10. COTRIMAZOLE-BETAMETHASONE [Concomitant]
  11. OMEPRAZOLE [Concomitant]
     Active Substance: OMEPRAZOLE
  12. POTASSIUM CHLORIDE [Concomitant]
     Active Substance: POTASSIUM CHLORIDE
  13. ATORVASTATIN CALCIUM [Concomitant]
     Active Substance: ATORVASTATIN CALCIUM
  14. METOPROLOL TARTRATE [Concomitant]
     Active Substance: METOPROLOL TARTRATE

REACTIONS (2)
  - Seasonal allergy [Unknown]
  - Off label use [Unknown]
